FAERS Safety Report 10026833 (Version 1)
Quarter: 2014Q1

REPORT INFORMATION
  Report Type: Spontaneous
  Country: TR (occurrence: TR)
  Receive Date: 20140321
  Receipt Date: 20140321
  Transmission Date: 20141002
  Serious: Yes (Death)
  Sender: FDA-Public Use
  Company Number: TR-AMGEN-TURSP2014019893

PATIENT
  Age: 48 Year
  Sex: Female

DRUGS (1)
  1. NEUPOGEN [Suspect]
     Indication: NEUTROPENIA
     Dosage: 48 MU/DAILY
     Route: 058
     Dates: start: 20131115, end: 20131119

REACTIONS (1)
  - Capillary leak syndrome [Fatal]
